FAERS Safety Report 5880129-1 (Version None)
Quarter: 2008Q3

REPORT INFORMATION
  Report Type: 
  Country: None (occurrence: None)
  Receive Date: 20080911
  Receipt Date: 20080911
  Transmission Date: 20090109
  Serious: Yes (Other)
  Sender: FDA-Public Use
  Company Number: None

PATIENT
  Age: 83 Year
  Sex: Male
  Weight: 108.8633 kg

DRUGS (2)
  1. ADVAIR DISC INHALER [Suspect]
     Indication: CHRONIC OBSTRUCTIVE PULMONARY DISEASE
     Dosage: 100/50 MIS GLAX TWICE DAILY BY MOUTH (DURATION: APPROXIMATELY 15 DAYS)
     Route: 048
  2. NASONEX [Concomitant]

REACTIONS (3)
  - APHASIA [None]
  - DYSPHONIA [None]
  - THROAT IRRITATION [None]
